FAERS Safety Report 9348067 (Version 1)
Quarter: 2013Q2

REPORT INFORMATION
  Report Type: Spontaneous
  Country: US (occurrence: US)
  Receive Date: 20130614
  Receipt Date: 20130614
  Transmission Date: 20140414
  Serious: No
  Sender: FDA-Public Use
  Company Number: US-BAYER-2013-073177

PATIENT
  Age: 79 Year
  Sex: Female
  Weight: 77.1 kg

DRUGS (2)
  1. ALEVE CAPLET [Suspect]
     Indication: ARTHRITIS
     Dosage: 1 DF, PRN
     Route: 048
     Dates: start: 2012
  2. INDERAL [Concomitant]

REACTIONS (1)
  - Dysgeusia [Recovered/Resolved]
